FAERS Safety Report 5237112-9 (Version None)
Quarter: 2007Q1

REPORT INFORMATION
  Report Type: 
  Country: None (occurrence: None)
  Receive Date: 20070213
  Receipt Date: 20070212
  Transmission Date: 20070707
  Serious: Yes (Hospitalization)
  Sender: FDA-Public Use
  Company Number: US-GLAXOSMITHKLINE-A0638973A

PATIENT
  Age: 74 Year
  Sex: Male

DRUGS (2)
  1. COMMIT [Suspect]
     Dosage: 2MG TWELVE TIMES PER DAY
     Route: 002
     Dates: start: 20070101
  2. PAXIL [Concomitant]
     Dosage: 30MG PER DAY

REACTIONS (9)
  - DIARRHOEA [None]
  - DYSSTASIA [None]
  - FAECES DISCOLOURED [None]
  - FULL BLOOD COUNT DECREASED [None]
  - HAEMORRHAGE [None]
  - MALAISE [None]
  - NAUSEA [None]
  - SYNCOPE [None]
  - ULCER HAEMORRHAGE [None]
